FAERS Safety Report 9109215 (Version 4)
Quarter: 2013Q2

REPORT INFORMATION
  Report Type: Spontaneous
  Country: JP (occurrence: JP)
  Receive Date: 20130222
  Receipt Date: 20130403
  Transmission Date: 20140414
  Serious: Yes (Hospitalization)
  Sender: FDA-Public Use
  Company Number: JP-009507513-2009SP012904

PATIENT
  Age: 14 Year
  Sex: Male

DRUGS (4)
  1. CLARITIN [Suspect]
     Indication: DERMATITIS ATOPIC
     Dosage: 20 MG, QD
     Route: 048
     Dates: start: 20090530, end: 20090530
  2. EURAX [Concomitant]
     Indication: DERMATITIS ATOPIC
     Dosage: 1 G, BID
     Route: 051
     Dates: start: 20090529, end: 20090730
  3. HIRUDOID [Concomitant]
     Indication: DERMATITIS ATOPIC
     Dosage: 1 G, BID FORMULATION EXT
     Route: 051
     Dates: start: 20090529, end: 20090730
  4. ANTEBATE [Concomitant]
     Indication: DERMATITIS ATOPIC
     Dosage: 1 G, BID
     Route: 051
     Dates: start: 20090529, end: 20090730

REACTIONS (1)
  - Coma [Recovered/Resolved]
